FAERS Safety Report 10448942 (Version 2)
Quarter: 2015Q2

REPORT INFORMATION
  Report Type: Spontaneous
  Country: GB (occurrence: GB)
  Receive Date: 20140912
  Receipt Date: 20150626
  Transmission Date: 20150821
  Serious: Yes (Life-Threatening, Disabling)
  Sender: FDA-Public Use
  Company Number: GB-UCBSA-2014011398

PATIENT
  Age: 56 Year
  Sex: Female

DRUGS (6)
  1. CIMZIA [Suspect]
     Active Substance: CERTOLIZUMAB PEGOL
     Indication: RHEUMATOID ARTHRITIS
     Dosage: 200 MG, EV 2 WEEKS(QOW)
     Route: 058
     Dates: start: 201405, end: 20140820
  2. METHOTREXATE SODIUM. [Concomitant]
     Active Substance: METHOTREXATE SODIUM
     Indication: RHEUMATOID ARTHRITIS
     Dosage: DOSE UNKNOWN
  3. ORAMORPH SR SUSTAINED RELEASE [Concomitant]
     Active Substance: MORPHINE SULFATE
     Dosage: DOSE UNKNOWN
  4. FOLIC ACID. [Concomitant]
     Active Substance: FOLIC ACID
     Dosage: DOSE UNKNOWN
  5. DICLOFENAC SODIUM. [Concomitant]
     Active Substance: DICLOFENAC SODIUM
     Dosage: DOSE UNKNOWN
  6. TRAMADOL HYDROCHLORIDE. [Concomitant]
     Active Substance: TRAMADOL HYDROCHLORIDE
     Dosage: DOSE UNKNOWN

REACTIONS (1)
  - Breast cancer [Unknown]

NARRATIVE: CASE EVENT DATE: 2014
